FAERS Safety Report 17176321 (Version 1)
Quarter: 2019Q4

REPORT INFORMATION
  Report Type: Spontaneous
  Country: FR (occurrence: FR)
  Receive Date: 20191219
  Receipt Date: 20191219
  Transmission Date: 20200122
  Serious: Yes (Other)
  Sender: FDA-Public Use
  Company Number: FR-MYLANLABS-2019M1124911

PATIENT
  Age: 36 Year

DRUGS (1)
  1. OXALIPLATIN. [Suspect]
     Active Substance: OXALIPLATIN
     Indication: PRODUCT USED FOR UNKNOWN INDICATION
     Dosage: 160 MILLIGRAM 30 MINUTES (VOLUME: 300 ML)

REACTIONS (3)
  - Syncope [Recovering/Resolving]
  - Incorrect drug administration rate [Unknown]
  - Hyperhidrosis [Recovering/Resolving]
